FAERS Safety Report 20849733 (Version 1)
Quarter: 2022Q2

REPORT INFORMATION
  Report Type: Spontaneous
  Country: DE (occurrence: DE)
  Receive Date: 20220519
  Receipt Date: 20220519
  Transmission Date: 20220721
  Serious: Yes (Other)
  Sender: FDA-Public Use
  Company Number: DE-GLAXOSMITHKLINE-DE2022EME077955

PATIENT

DRUGS (1)
  1. ZEJULA [Suspect]
     Active Substance: NIRAPARIB
     Indication: Ovarian cancer
     Dosage: 200 MG
     Dates: start: 202202

REACTIONS (4)
  - Polyneuropathy [Unknown]
  - Sensory disturbance [Unknown]
  - Paraesthesia [Unknown]
  - Hypertension [Unknown]
